FAERS Safety Report 9278453 (Version 1)
Quarter: 2013Q2

REPORT INFORMATION
  Report Type: Spontaneous
  Country: US (occurrence: US)
  Receive Date: 20130508
  Receipt Date: 20130508
  Transmission Date: 20140414
  Serious: Yes (Other)
  Sender: FDA-Public Use
  Company Number: US-009507513-1305USA002633

PATIENT
  Sex: Male

DRUGS (3)
  1. JANUMET [Suspect]
     Indication: TYPE 2 DIABETES MELLITUS
     Dosage: 50/1000 MG, TWICE DAILY
     Route: 048
     Dates: start: 2011
  2. PRINIVIL [Concomitant]
     Route: 048
  3. ZOCOR [Concomitant]
     Route: 048

REACTIONS (1)
  - Pancreatitis acute [Recovered/Resolved]
